FAERS Safety Report 24596701 (Version 1)
Quarter: 2024Q4

REPORT INFORMATION
  Report Type: Spontaneous
  Country: US (occurrence: US)
  Receive Date: 20241110
  Receipt Date: 20241110
  Transmission Date: 20250115
  Serious: No
  Sender: SANOFI AVENTIS
  Company Number: US-SA-2024SA306959

PATIENT
  Age: 30 Year
  Sex: Male
  Weight: 85 kg

DRUGS (5)
  1. CERDELGA [Suspect]
     Active Substance: ELIGLUSTAT
     Indication: Gaucher^s disease
     Dosage: 84 MG, BID
     Route: 048
     Dates: start: 20190926
  2. FISH OIL [Concomitant]
     Active Substance: FISH OIL
  3. HERBALS\SPIRULINA [Concomitant]
     Active Substance: HERBALS\SPIRULINA
  4. VITAMINS [Concomitant]
     Active Substance: VITAMINS
  5. HERBALS\TURMERIC [Concomitant]
     Active Substance: HERBALS\TURMERIC

REACTIONS (1)
  - Seasonal allergy [Not Recovered/Not Resolved]
